FAERS Safety Report 18630859 (Version 1)
Quarter: 2020Q4

REPORT INFORMATION
  Report Type: Spontaneous
  Country: US (occurrence: US)
  Receive Date: 20201217
  Receipt Date: 20201217
  Transmission Date: 20210114
  Serious: Yes (Other)
  Sender: FDA-Public Use
  Company Number: US-ELI_LILLY_AND_COMPANY-US202012004768

PATIENT
  Age: 65 Year
  Sex: Male
  Weight: 97.5 kg

DRUGS (1)
  1. BAMLANIVIMAB 700MG [Suspect]
     Active Substance: BAMLANIVIMAB
     Indication: COVID-19
     Dosage: 700 MG, SINGLE
     Route: 042
     Dates: start: 20201201, end: 20201201

REACTIONS (2)
  - Dyspnoea [Unknown]
  - Orthopnoea [Unknown]

NARRATIVE: CASE EVENT DATE: 20201202
